FAERS Safety Report 4688054-9 (Version None)
Quarter: 2005Q2

REPORT INFORMATION
  Report Type: 
  Country: None (occurrence: None)
  Receive Date: 20050610
  Receipt Date: 20050531
  Transmission Date: 20051028
  Serious: Yes (Life-Threatening, Hospitalization)
  Sender: FDA-Public Use
  Company Number: FR-ROCHE-406334

PATIENT
  Age: 57 Year
  Sex: Male

DRUGS (5)
  1. CAPECITABINE [Suspect]
     Route: 048
     Dates: start: 20050119
  2. BLINDED BEVACIZUMAB [Suspect]
     Route: 042
     Dates: start: 20050119
  3. OXALIPLATIN [Suspect]
     Route: 042
     Dates: start: 20050119
  4. TETRAZEPAM [Concomitant]
     Dates: start: 20050411
  5. MORPHINE SULFATE [Concomitant]
     Dates: start: 20050420

REACTIONS (1)
  - RENAL FAILURE ACUTE [None]
